FAERS Safety Report 12257022 (Version 2)
Quarter: 2019Q4

REPORT INFORMATION
  Report Type: Spontaneous
  Country: US (occurrence: US)
  Receive Date: 20160412
  Receipt Date: 20191108
  Transmission Date: 20200122
  Serious: Yes (Other)
  Sender: FDA-Public Use
  Company Number: US-PFIZER INC-2016204666

PATIENT
  Age: 56 Year
  Sex: Male

DRUGS (14)
  1. CIALIS [Suspect]
     Active Substance: TADALAFIL
     Dosage: 5 MG, ONCE EVERY 1 TO 2 MONTHS
     Route: 048
     Dates: start: 20100729, end: 201008
  2. VIAGRA [Suspect]
     Active Substance: SILDENAFIL CITRATE
     Indication: ERECTILE DYSFUNCTION
     Dosage: 100 MG, ONCE EVERY 1 TO 2 MONTHS
     Route: 048
     Dates: start: 200409, end: 2008
  3. VIAGRA [Suspect]
     Active Substance: SILDENAFIL CITRATE
     Dosage: 50 MG, ONCE EVERY 1 TO 2 MONTHS
     Route: 048
     Dates: start: 2008, end: 2008
  4. CIALIS [Suspect]
     Active Substance: TADALAFIL
     Indication: ERECTILE DYSFUNCTION
     Dosage: 3 DF, UNK ONCE EVERY 1 TO 2 MONTHS
     Route: 048
     Dates: start: 20070105, end: 200703
  5. CIALIS [Suspect]
     Active Substance: TADALAFIL
     Dosage: 5 MG, ONCE EVERY 1 TO 2 MONTHS
     Route: 048
     Dates: start: 20120703, end: 201211
  6. VITAMIN B6 [Concomitant]
     Active Substance: PYRIDOXINE HYDROCHLORIDE
     Indication: HYPOTHYROIDISM
     Dosage: UNK
     Dates: start: 201409
  7. VITAMIN B12 [Concomitant]
     Active Substance: CYANOCOBALAMIN
     Indication: HYPOTHYROIDISM
     Dosage: UNK
     Dates: start: 201409
  8. NIACIN. [Concomitant]
     Active Substance: NIACIN
     Indication: HYPOTHYROIDISM
     Dosage: UNK
     Dates: start: 201409
  9. CIALIS [Suspect]
     Active Substance: TADALAFIL
     Dosage: 5 MG, ONCE EVERY 1 TO 2 MONTHS
     Route: 048
     Dates: start: 20140110, end: 201602
  10. FISH OIL [Concomitant]
     Active Substance: FISH OIL
     Indication: CARDIOVASCULAR EVENT PROPHYLAXIS
     Dosage: UNK
     Dates: start: 201409
  11. CIALIS [Suspect]
     Active Substance: TADALAFIL
     Dosage: 5 MG, ONCE EVERY 1 TO 2 MONTHS
     Route: 048
     Dates: start: 20070723, end: 200911
  12. ZINC. [Concomitant]
     Active Substance: ZINC
     Indication: HYPOTHYROIDISM
     Dosage: UNK
     Dates: start: 201409
  13. VIAGRA [Suspect]
     Active Substance: SILDENAFIL CITRATE
     Dosage: 100 MG, ONCE EVERY 1 TO 2 MONTHS
     Route: 048
     Dates: start: 2008, end: 200904
  14. FOLATE [Concomitant]
     Active Substance: FOLATE SODIUM
     Indication: HYPOTHYROIDISM
     Dosage: UNK
     Dates: start: 201409

REACTIONS (4)
  - Malignant melanoma in situ [Unknown]
  - Anxiety [Unknown]
  - Shock [Unknown]
  - Emotional distress [Unknown]

NARRATIVE: CASE EVENT DATE: 200901
